FAERS Safety Report 4697661-9 (Version None)
Quarter: 2005Q2

REPORT INFORMATION
  Report Type: 
  Country: None (occurrence: None)
  Receive Date: 20050622
  Receipt Date: 20050602
  Transmission Date: 20051028
  Serious: Yes (Other)
  Sender: FDA-Public Use
  Company Number: USA050597695

PATIENT
  Age: 70 Year
  Sex: Female
  Weight: 68 kg

DRUGS (6)
  1. CYMBALTA [Suspect]
     Indication: NEUROPATHY PERIPHERAL
     Dosage: 60 MG DAY
     Dates: start: 20050401
  2. POTASSIUM CHLORIDE [Concomitant]
  3. ACETYLSALICYLIC ACID SRT [Concomitant]
  4. LIPITOR [Concomitant]
  5. TYLENOL PM [Concomitant]
  6. ESTROGEN NOS [Concomitant]

REACTIONS (6)
  - CONVULSION [None]
  - DYSKINESIA [None]
  - HEAD INJURY [None]
  - INCORRECT DOSE ADMINISTERED [None]
  - LETHARGY [None]
  - PARAESTHESIA [None]
